FAERS Safety Report 6168820-3 (Version None)
Quarter: 2009Q2

REPORT INFORMATION
  Report Type: 
  Country: None (occurrence: None)
  Receive Date: 20090424
  Receipt Date: 20090424
  Transmission Date: 20091009
  Serious: Yes (Other)
  Sender: FDA-Public Use
  Company Number: None

PATIENT
  Sex: Female
  Weight: 62.95 kg

DRUGS (3)
  1. ROBAXIN [Suspect]
     Dosage: 750MG TABLET 750 MG QID ORAL
     Route: 048
     Dates: start: 20090306, end: 20090423
  2. FLUTICASONE PROPIONATE [Concomitant]
  3. MVI (MULTIVITAMINS) [Concomitant]

REACTIONS (1)
  - DYSPHORIA [None]
